FAERS Safety Report 22383335 (Version 2)
Quarter: 2023Q2

REPORT INFORMATION
  Report Type: Report from Study
  Country: IT (occurrence: IT)
  Receive Date: 20230530
  Receipt Date: 20230612
  Transmission Date: 20230721
  Serious: Yes (Other)
  Sender: FDA-Public Use
  Company Number: IT-PFIZER INC-2002050690

PATIENT
  Age: 33 Year
  Sex: Female

DRUGS (7)
  1. VIRACEPT [Suspect]
     Active Substance: NELFINAVIR MESYLATE
     Indication: HIV infection
     Dosage: UNK (SECOND)
     Route: 048
  2. EFAVIRENZ [Suspect]
     Active Substance: EFAVIRENZ
     Indication: HIV infection
     Dosage: UNK
     Route: 048
     Dates: start: 20000112, end: 20000217
  3. EFAVIRENZ [Suspect]
     Active Substance: EFAVIRENZ
     Dosage: 600 (FIRST)
     Route: 048
  4. LAMIVUDINE [Suspect]
     Active Substance: LAMIVUDINE
     Indication: HIV infection
     Dosage: UNK, (SECOND)
     Route: 048
  5. ZIDOVUDINE [Suspect]
     Active Substance: ZIDOVUDINE
     Indication: HIV infection
     Dosage: UNK (FIRST)
     Route: 048
     Dates: start: 20000112, end: 20000217
  6. STAVUDINE [Suspect]
     Active Substance: STAVUDINE
     Dosage: UNK (FIRST)
     Route: 048
     Dates: start: 20000112
  7. FOLIC ACID [Concomitant]
     Active Substance: FOLIC ACID
     Indication: Supplementation therapy
     Dosage: UNK

REACTIONS (2)
  - Unevaluable event [Unknown]
  - Maternal exposure during pregnancy [Unknown]
